FAERS Safety Report 13703646 (Version 4)
Quarter: 2021Q1

REPORT INFORMATION
  Report Type: Report from Study
  Country: US (occurrence: US)
  Receive Date: 20170629
  Receipt Date: 20210218
  Transmission Date: 20210419
  Serious: Yes (Other)
  Sender: FDA-Public Use
  Company Number: US-JAZZ-2017-US-006982

PATIENT
  Sex: Female

DRUGS (3)
  1. XYREM [Suspect]
     Active Substance: SODIUM OXYBATE
     Dosage: 4.5 G, BID
     Route: 048
     Dates: start: 201705
  2. XYREM [Suspect]
     Active Substance: SODIUM OXYBATE
     Indication: NARCOLEPSY
     Dosage: 2.25 G, BID
     Route: 048
     Dates: start: 201703, end: 201704
  3. XYREM [Suspect]
     Active Substance: SODIUM OXYBATE
     Dosage: DOSE ADJUSTMENT
     Route: 048
     Dates: start: 201704, end: 201705

REACTIONS (13)
  - Product dose omission issue [Unknown]
  - Intentional product use issue [Unknown]
  - Pyrexia [Unknown]
  - Fatigue [Unknown]
  - Product preparation error [Unknown]
  - Amnesia [Not Recovered/Not Resolved]
  - Thirst [Unknown]
  - Insomnia [Unknown]
  - Oropharyngeal pain [Unknown]
  - Balance disorder [Unknown]
  - Sinus disorder [Unknown]
  - Hypoaesthesia [Not Recovered/Not Resolved]
  - Syncope [Unknown]

NARRATIVE: CASE EVENT DATE: 2017
